FAERS Safety Report 5509681-2 (Version None)
Quarter: 2007Q4

REPORT INFORMATION
  Report Type: 
  Country: None (occurrence: None)
  Receive Date: 20071107
  Receipt Date: 20071107
  Transmission Date: 20080405
  Serious: Yes (Hospitalization)
  Sender: FDA-Public Use
  Company Number: None

PATIENT
  Sex: Male
  Weight: 109 kg

DRUGS (11)
  1. WARFARIN SODIUM [Suspect]
     Indication: DEEP VEIN THROMBOSIS
     Dosage: 5 MG DAILY ORAL
     Route: 048
     Dates: start: 20010209
  2. WARFARIN SODIUM [Suspect]
     Indication: PULMONARY OEDEMA
     Dosage: 5 MG DAILY ORAL
     Route: 048
     Dates: start: 20010209
  3. ACETAMINOPHEN [Concomitant]
  4. ATORVASTATIN CALCIUM [Concomitant]
  5. DIVALPROEX SA [Concomitant]
  6. FUROSEMIDE [Concomitant]
  7. LISINOPRIL [Concomitant]
  8. METOLAZONE [Concomitant]
  9. MYCOPHENOLATE MOFETIL [Concomitant]
  10. OMEPRAZOLE [Concomitant]
  11. RISPERIDONE [Concomitant]

REACTIONS (4)
  - ABDOMINAL PAIN [None]
  - HAEMATOCHEZIA [None]
  - RECTAL HAEMORRHAGE [None]
  - THROMBOSIS [None]
